FAERS Safety Report 5500970-4 (Version None)
Quarter: 2007Q4

REPORT INFORMATION
  Report Type: 
  Country: None (occurrence: None)
  Receive Date: 20071029
  Receipt Date: 20071019
  Transmission Date: 20080405
  Serious: Yes (Other)
  Sender: FDA-Public Use
  Company Number: PHBS2007FI17476

PATIENT
  Age: 62 Year
  Sex: Male

DRUGS (1)
  1. EXJADE [Suspect]
     Indication: MYELOFIBROSIS
     Dosage: 1500 MG/D
     Route: 065
     Dates: start: 20060201, end: 20070401

REACTIONS (3)
  - GASTRIC ULCER [None]
  - GASTROINTESTINAL DISORDER [None]
  - HAEMATEMESIS [None]
